FAERS Safety Report 15576422 (Version 2)
Quarter: 2019Q2

REPORT INFORMATION
  Report Type: Spontaneous
  Country: US (occurrence: US)
  Receive Date: 20181101
  Receipt Date: 20190528
  Transmission Date: 20190711
  Serious: No
  Sender: FDA-Public Use
  Company Number: US-PFIZER INC-2018442911

PATIENT
  Age: 70 Year
  Sex: Male

DRUGS (1)
  1. SPIRONOLACTONE. [Suspect]
     Active Substance: SPIRONOLACTONE
     Indication: HYPERADRENALISM
     Dosage: UNK

REACTIONS (4)
  - Off label use [Unknown]
  - Product dispensing error [Unknown]
  - Product use in unapproved indication [Unknown]
  - Blood potassium increased [Unknown]
